FAERS Safety Report 10269067 (Version 1)
Quarter: 2014Q2

REPORT INFORMATION
  Report Type: Spontaneous
  Country: DE (occurrence: DE)
  Receive Date: 20140630
  Receipt Date: 20140630
  Transmission Date: 20141212
  Serious: Yes (Other)
  Sender: FDA-Public Use
  Company Number: GXKR2014DE002424

PATIENT
  Age: 46 Year
  Sex: Female
  Weight: 76 kg

DRUGS (2)
  1. CIPROFLOXACIN [Suspect]
     Indication: WHITE BLOOD CELL COUNT INCREASED
     Dosage: 500 MG, UNK
     Route: 048
     Dates: start: 20130314
  2. CLONT (METRONIDAZOLE) [Suspect]
     Indication: WHITE BLOOD CELL COUNT INCREASED
     Dosage: 500 MG, UNK
     Route: 048
     Dates: start: 20130314

REACTIONS (4)
  - Toxicity to various agents [Unknown]
  - Psychotic disorder [Unknown]
  - Suicidal ideation [Unknown]
  - Multi-organ disorder [Unknown]
